FAERS Safety Report 6188473-8 (Version None)
Quarter: 2009Q2

REPORT INFORMATION
  Report Type: 
  Country: None (occurrence: None)
  Receive Date: 20090513
  Receipt Date: 20090501
  Transmission Date: 20091009
  Serious: Yes (Other)
  Sender: FDA-Public Use
  Company Number: US-GILEAD-2008-0019575

PATIENT
  Age: 21 Year
  Sex: Female

DRUGS (3)
  1. EMTRIVA [Suspect]
     Indication: HIV INFECTION
     Route: 048
     Dates: start: 20080723, end: 20081031
  2. ZIDOVUDINE [Concomitant]
     Indication: HIV INFECTION
     Dates: start: 20080723, end: 20081031
  3. KALETRA [Concomitant]
     Indication: HIV INFECTION
     Dates: start: 20080723, end: 20081031

REACTIONS (2)
  - PLACENTAL DISORDER [None]
  - STILLBIRTH [None]
